FAERS Safety Report 23182686 (Version 2)
Quarter: 2024Q1

REPORT INFORMATION
  Report Type: Spontaneous
  Country: US (occurrence: US)
  Receive Date: 20231114
  Receipt Date: 20240117
  Transmission Date: 20240410
  Serious: No
  Sender: FDA-Public Use
  Company Number: US-PFIZER INC-202300361639

PATIENT
  Age: 61 Year
  Sex: Female
  Weight: 81.633 kg

DRUGS (3)
  1. INLYTA [Suspect]
     Active Substance: AXITINIB
     Indication: Renal cell carcinoma
     Dosage: 5 MG, 2X/DAY (5MG TABLET TAKE 2 TABLETS (10MG) BY MOUTH TWICE DAILY)
     Route: 048
     Dates: start: 20230217, end: 202310
  2. INLYTA [Suspect]
     Active Substance: AXITINIB
     Dosage: 5 MG, 2X/DAY (5MG TABLET TAKE 2 TABLETS (10MG) BY MOUTH TWICE DAILY)
     Route: 048
     Dates: start: 20230208, end: 202311
  3. KEYTRUDA [Concomitant]
     Active Substance: PEMBROLIZUMAB
     Dosage: UNK
     Dates: start: 20230221, end: 202311

REACTIONS (5)
  - Neoplasm progression [Recovering/Resolving]
  - Nausea [Recovered/Resolved]
  - Diarrhoea [Recovered/Resolved]
  - Decreased appetite [Recovered/Resolved]
  - Weight decreased [Recovered/Resolved]

NARRATIVE: CASE EVENT DATE: 20230401
